FAERS Safety Report 7099890-6 (Version None)
Quarter: 2010Q4

REPORT INFORMATION
  Report Type: 
  Country: None (occurrence: None)
  Receive Date: 20101112
  Receipt Date: 20101108
  Transmission Date: 20110411
  Serious: Yes (Death, Life-Threatening)
  Sender: FDA-Public Use
  Company Number: DE-ASTRAZENECA-2010SE52869

PATIENT
  Age: 84 Year
  Sex: Male

DRUGS (19)
  1. SEROQUEL [Suspect]
     Indication: DEMENTIA
     Route: 048
     Dates: start: 20090317
  2. SEROQUEL [Suspect]
     Indication: DELIRIUM
     Route: 048
     Dates: start: 20090317
  3. SEROQUEL [Suspect]
     Route: 048
     Dates: start: 20090318
  4. SEROQUEL [Suspect]
     Route: 048
     Dates: start: 20090318
  5. SEROQUEL [Suspect]
     Route: 048
     Dates: start: 20090319, end: 20090322
  6. SEROQUEL [Suspect]
     Route: 048
     Dates: start: 20090319, end: 20090322
  7. SEROQUEL [Suspect]
     Route: 048
     Dates: start: 20090323, end: 20090409
  8. SEROQUEL [Suspect]
     Route: 048
     Dates: start: 20090323, end: 20090409
  9. SEROQUEL [Suspect]
     Route: 048
     Dates: start: 20090410
  10. SEROQUEL [Suspect]
     Route: 048
     Dates: start: 20090410
  11. DOMINAL [Suspect]
     Route: 048
     Dates: start: 20090313, end: 20090317
  12. DOMINAL [Suspect]
     Route: 048
     Dates: start: 20090318, end: 20090401
  13. DOMINAL [Suspect]
     Route: 048
     Dates: start: 20090402, end: 20090406
  14. DOMINAL [Suspect]
     Route: 048
     Dates: start: 20090407
  15. METOPROLOL SUCCINATE [Concomitant]
     Route: 048
  16. ISOKET REATRD [Concomitant]
     Route: 048
  17. TAMSULOSIN [Concomitant]
     Route: 048
  18. TRIARESE [Concomitant]
     Dosage: 50/25 MG DAILY
     Route: 048
  19. ISCOVER [Concomitant]
     Route: 048
     Dates: start: 20090321

REACTIONS (1)
  - CARDIAC ARREST [None]
